FAERS Safety Report 18846675 (Version 1)
Quarter: 2021Q1

REPORT INFORMATION
  Report Type: Spontaneous
  Country: US (occurrence: US)
  Receive Date: 20210204
  Receipt Date: 20210204
  Transmission Date: 20210419
  Serious: Yes (Other)
  Sender: FDA-Public Use
  Company Number: None

PATIENT
  Age: 76 Year
  Sex: Female

DRUGS (1)
  1. SUCRALFATE. [Suspect]
     Active Substance: SUCRALFATE
     Dosage: ?          OTHER ROUTE:DISSOLVE, ORAL?

REACTIONS (2)
  - Burning sensation [None]
  - Product substitution issue [None]

NARRATIVE: CASE EVENT DATE: 20210203
